FAERS Safety Report 4999905-2 (Version None)
Quarter: 2006Q2

REPORT INFORMATION
  Report Type: 
  Country: None (occurrence: None)
  Receive Date: 20060509
  Receipt Date: 20060419
  Transmission Date: 20061013
  Serious: Yes (Hospitalization)
  Sender: FDA-Public Use
  Company Number: ES200604003842

PATIENT
  Age: 68 Year
  Sex: Male

DRUGS (1)
  1. XIGRIS [Suspect]
     Indication: SEPSIS
     Dosage: 24 UG/KG/HR, OTHER; INTRAVENOUS
     Route: 042
     Dates: start: 20060413, end: 20060416

REACTIONS (3)
  - INCORRECT DRUG ADMINISTRATION DURATION [None]
  - PULMONARY FUNCTION TEST ABNORMAL [None]
  - RENAL IMPAIRMENT [None]
